FAERS Safety Report 24458910 (Version 1)
Quarter: 2024Q4

REPORT INFORMATION
  Report Type: Spontaneous
  Country: US (occurrence: US)
  Receive Date: 20241018
  Receipt Date: 20241018
  Transmission Date: 20250115
  Serious: No
  Sender: ROCHE
  Company Number: US-ROCHE-3526164

PATIENT
  Age: 70 Year
  Sex: Male

DRUGS (6)
  1. RITUXIMAB [Suspect]
     Active Substance: RITUXIMAB
     Indication: Thrombocytopenia
     Route: 065
  2. METHYLPREDNISOLONE [Concomitant]
     Active Substance: METHYLPREDNISOLONE
  3. ELTROMBOPAG [Concomitant]
     Active Substance: ELTROMBOPAG
  4. GLECAPREVIR [Concomitant]
     Active Substance: GLECAPREVIR
  5. PIBRENTASVIR [Concomitant]
     Active Substance: PIBRENTASVIR
  6. VALGANCICLOVIR [Concomitant]
     Active Substance: VALGANCICLOVIR

REACTIONS (2)
  - Drug ineffective [Unknown]
  - No adverse event [Unknown]
